FAERS Safety Report 26047982 (Version 1)
Quarter: 2025Q4

REPORT INFORMATION
  Report Type: Report from Study
  Country: US (occurrence: US)
  Receive Date: 20251114
  Receipt Date: 20251114
  Transmission Date: 20260118
  Serious: Yes (Other)
  Sender: MALLINCKRODT
  Company Number: US-MALLINCKRODT-MNK202506942

PATIENT
  Age: 49 Year
  Sex: Male

DRUGS (3)
  1. CORTICOTROPIN [Suspect]
     Active Substance: CORTICOTROPIN
     Indication: Pulmonary sarcoidosis
     Dosage: 80 UNITS
     Dates: start: 20250522, end: 2025
  2. CORTICOTROPIN [Suspect]
     Active Substance: CORTICOTROPIN
     Dosage: UNKNOWN
     Dates: start: 2025
  3. CORTISONE [Concomitant]
     Active Substance: CORTISONE
     Dosage: UNKNOWN

REACTIONS (10)
  - Road traffic accident [Unknown]
  - Head injury [Unknown]
  - Forearm fracture [Unknown]
  - Joint dislocation [Unknown]
  - Sternal fracture [Unknown]
  - Wrist fracture [Unknown]
  - Nausea [Unknown]
  - Night sweats [Unknown]
  - Vomiting [Unknown]
  - Injection site abscess [Unknown]

NARRATIVE: CASE EVENT DATE: 20250101
